FAERS Safety Report 17138036 (Version 1)
Quarter: 2019Q4

REPORT INFORMATION
  Report Type: Spontaneous
  Country: DE (occurrence: DE)
  Receive Date: 20191211
  Receipt Date: 20191211
  Transmission Date: 20200122
  Serious: Yes (Other)
  Sender: FDA-Public Use
  Company Number: DE-TEVA-2019-DE-1147601

PATIENT
  Age: 72 Year
  Sex: Male

DRUGS (1)
  1. SIMVASTATIN-RATIOPHARM 10 MG FILMTABLETTEN [Suspect]
     Active Substance: SIMVASTATIN
     Dosage: 20 MILLIGRAM DAILY; IN THE EVENING
     Route: 048

REACTIONS (2)
  - Blood pressure increased [Recovering/Resolving]
  - Low density lipoprotein increased [Recovering/Resolving]
